FAERS Safety Report 7771924-2 (Version None)
Quarter: 2011Q3

REPORT INFORMATION
  Report Type: 
  Country: None (occurrence: None)
  Receive Date: 20110922
  Receipt Date: 20110601
  Transmission Date: 20111222
  Serious: No
  Sender: FDA-Public Use
  Company Number: US-ASTRAZENECA-2011SE34033

PATIENT
  Age: 43 Year
  Sex: Male
  Weight: 93 kg

DRUGS (1)
  1. SEROQUEL XR [Suspect]
     Indication: DEPRESSION
     Route: 048
     Dates: start: 20110501, end: 20110531

REACTIONS (3)
  - WRONG DRUG ADMINISTERED [None]
  - DIZZINESS [None]
  - TACHYPHRENIA [None]
